FAERS Safety Report 8624320-X (Version None)
Quarter: 2012Q3

REPORT INFORMATION
  Report Type: 
  Country: None (occurrence: None)
  Receive Date: 20120827
  Receipt Date: 20120814
  Transmission Date: 20120928
  Serious: Yes (Hospitalization)
  Sender: FDA-Public Use
  Company Number: US-ACTELION-A-NJ2009-25517

PATIENT
  Age: 53 Year
  Sex: Female

DRUGS (3)
  1. TRACLEER [Suspect]
     Indication: PULMONARY ARTERIAL HYPERTENSION
     Dosage: UNK
     Route: 048
     Dates: start: 20090505, end: 20090519
  2. ACETYLSALICYLIC ACID SRT [Concomitant]
  3. TRACLEER [Suspect]
     Dosage: UNK
     Route: 048

REACTIONS (3)
  - RENAL DISORDER [None]
  - GENERALISED OEDEMA [None]
  - HYPOTENSION [None]
